FAERS Safety Report 6419438-6 (Version None)
Quarter: 2009Q4

REPORT INFORMATION
  Report Type: 
  Country: None (occurrence: None)
  Receive Date: 20091029
  Receipt Date: 20090902
  Transmission Date: 20100525
  Serious: Yes (Other)
  Sender: FDA-Public Use
  Company Number: US-ASTRAZENECA-2009SE11151

PATIENT
  Age: 72 Year
  Sex: Female

DRUGS (2)
  1. PROPOFOL [Suspect]
     Route: 042
  2. VICODIN [Concomitant]

REACTIONS (2)
  - AGGRESSION [None]
  - COGNITIVE DISORDER [None]
